FAERS Safety Report 5050994-9 (Version None)
Quarter: 2006Q3

REPORT INFORMATION
  Report Type: 
  Country: None (occurrence: None)
  Receive Date: 20060714
  Receipt Date: 20060628
  Transmission Date: 20061208
  Serious: Yes (Hospitalization)
  Sender: FDA-Public Use
  Company Number: PHBS2006JP09829

PATIENT
  Age: 69 Year
  Sex: Female

DRUGS (2)
  1. LOXOPROFEN SODIUM [Suspect]
     Indication: RHEUMATOID ARTHRITIS
     Dosage: 180 MG/DAY
     Route: 048
     Dates: start: 19980101, end: 20000101
  2. DICLOFENAC SODIUM [Suspect]
     Indication: RHEUMATOID ARTHRITIS
     Dosage: 75 MG/DAY
     Route: 048
     Dates: start: 19980101, end: 20000101

REACTIONS (28)
  - ABDOMINAL DISTENSION [None]
  - ABDOMINAL PAIN [None]
  - ACUTE RESPIRATORY DISTRESS SYNDROME [None]
  - ANAEMIA [None]
  - ASPERGILLOSIS [None]
  - CHEST X-RAY ABNORMAL [None]
  - COLITIS [None]
  - CONVULSION [None]
  - DEPRESSED LEVEL OF CONSCIOUSNESS [None]
  - DILATATION ATRIAL [None]
  - ENTEROCOCCAL INFECTION [None]
  - GASTROINTESTINAL INFECTION [None]
  - ILEAL PERFORATION [None]
  - ILEAL STENOSIS [None]
  - ILEECTOMY [None]
  - LARGE INTESTINE PERFORATION [None]
  - MORGANELLA INFECTION [None]
  - PERITONITIS [None]
  - PLATELET COUNT DECREASED [None]
  - PNEUMONIA [None]
  - PURULENCE [None]
  - SEPSIS [None]
  - SMALL INTESTINAL PERFORATION [None]
  - STAPHYLOCOCCAL INFECTION [None]
  - SUBCUTANEOUS ABSCESS [None]
  - SUBILEUS [None]
  - SURGERY [None]
  - SYSTEMIC INFLAMMATORY RESPONSE SYNDROME [None]
